FAERS Safety Report 9266624 (Version 2)
Quarter: 2013Q3

REPORT INFORMATION
  Report Type: Report from Study
  Country: BR (occurrence: BR)
  Receive Date: 20130502
  Receipt Date: 20130812
  Transmission Date: 20140515
  Serious: Yes (Hospitalization, Other)
  Sender: FDA-Public Use
  Company Number: PHHY2013BR018728

PATIENT
  Age: 37 Year
  Sex: Female

DRUGS (7)
  1. DIOVAN [Suspect]
     Indication: HYPERTENSION
     Dosage: 160 MG DAILY
     Route: 048
     Dates: start: 200912
  2. DIOVAN [Suspect]
     Dosage: 2 DF (OF 160MG), DAILY
     Route: 048
     Dates: start: 200912
  3. ALDACTONE [Concomitant]
     Indication: BLOOD PRESSURE INCREASED
     Dosage: 50 MG DAILY
     Route: 048
     Dates: start: 200912
  4. AAS [Concomitant]
     Indication: ANTICOAGULANT THERAPY
     Dosage: 2 DF DAILY
     Route: 048
     Dates: start: 2010
  5. REBOXXIN [Concomitant]
     Indication: CARDIAC DISORDER
     Dosage: 0.25 MG DAILY
     Route: 048
     Dates: start: 2010
  6. CARVEDILOL [Concomitant]
     Indication: RESPIRATORY FAILURE
     Dosage: 12.5 MG, Q12H
     Route: 048
     Dates: start: 2012
  7. LASIX [Concomitant]
     Indication: DIURETIC THERAPY
     Dosage: 40 MG, Q12H
     Route: 048
     Dates: start: 2010

REACTIONS (10)
  - Pulmonary oedema [Recovered/Resolved]
  - Infection [Recovered/Resolved]
  - Dyspnoea [Not Recovered/Not Resolved]
  - Lichen planus [Unknown]
  - Mitral valve disease [Recovering/Resolving]
  - Hypertension [Recovered/Resolved]
  - Muscular weakness [Unknown]
  - Influenza [Recovered/Resolved]
  - Local swelling [Not Recovered/Not Resolved]
  - Blood pressure inadequately controlled [Unknown]
